FAERS Safety Report 18767927 (Version 9)
Quarter: 2021Q2

REPORT INFORMATION
  Report Type: Spontaneous
  Country: US (occurrence: US)
  Receive Date: 20210121
  Receipt Date: 20210621
  Transmission Date: 20210717
  Serious: Yes (Hospitalization)
  Sender: FDA-Public Use
  Company Number: US-PFIZER INC-2021037961

PATIENT
  Age: 61 Year
  Sex: Female

DRUGS (3)
  1. IBRANCE [Suspect]
     Active Substance: PALBOCICLIB
     Indication: BREAST CANCER FEMALE
     Dosage: 100 MG, CYCLIC (DAILY FOR 21 DAYS ON, 7 DAYS OFF ON A 28?DAY CYCLE)
  2. TRAMADOL. [Interacting]
     Active Substance: TRAMADOL
     Indication: PAIN
     Dosage: UNK UNK, 2X/DAY
  3. TRAMADOL. [Interacting]
     Active Substance: TRAMADOL
     Dosage: UNK, 1X/DAY IN THE MORNING

REACTIONS (29)
  - Insomnia [Unknown]
  - Nausea [Unknown]
  - Oedema [Unknown]
  - Weight increased [Not Recovered/Not Resolved]
  - Alopecia [Unknown]
  - Mobility decreased [Unknown]
  - Pollakiuria [Unknown]
  - Headache [Not Recovered/Not Resolved]
  - Flatulence [Unknown]
  - Stomatitis [Not Recovered/Not Resolved]
  - Swelling [Unknown]
  - Fatigue [Not Recovered/Not Resolved]
  - Muscle tightness [Unknown]
  - Diarrhoea [Not Recovered/Not Resolved]
  - Abdominal discomfort [Unknown]
  - Muscular weakness [Unknown]
  - Hyperhidrosis [Unknown]
  - Eructation [Unknown]
  - Arthritis [Unknown]
  - Pain [Unknown]
  - Urinary incontinence [Unknown]
  - Stress [Unknown]
  - Decreased appetite [Not Recovered/Not Resolved]
  - Dyspnoea [Recovered/Resolved]
  - Muscle spasms [Unknown]
  - Feeling hot [Unknown]
  - Vomiting [Unknown]
  - Anxiety [Unknown]
  - Drug interaction [Unknown]

NARRATIVE: CASE EVENT DATE: 2020
